FAERS Safety Report 8514150-1 (Version None)
Quarter: 2012Q3

REPORT INFORMATION
  Report Type: 
  Country: None (occurrence: None)
  Receive Date: 20120717
  Receipt Date: 20120709
  Transmission Date: 20120928
  Serious: Yes (Other)
  Sender: FDA-Public Use
  Company Number: US-UCBSA-061370

PATIENT

DRUGS (1)
  1. CIMZIA [Suspect]
     Indication: CROHN'S DISEASE
     Route: 064
     Dates: start: 20111201

REACTIONS (2)
  - SMALL FOR DATES BABY [None]
  - FOETAL EXPOSURE DURING PREGNANCY [None]
